FAERS Safety Report 12395816 (Version 1)
Quarter: 2016Q2

REPORT INFORMATION
  Report Type: Spontaneous
  Country: US (occurrence: US)
  Receive Date: 20160523
  Receipt Date: 20160523
  Transmission Date: 20160815
  Serious: Yes (Hospitalization, Other)
  Sender: FDA-Public Use
  Company Number: US-RELYPSA-RLY2016000768

PATIENT

DRUGS (5)
  1. VELTASSA [Suspect]
     Active Substance: PATIROMER
     Indication: HYPERKALAEMIA
     Dosage: 8.4 G, QD
     Route: 048
     Dates: start: 20160506
  2. LEVEMIR [Concomitant]
     Active Substance: INSULIN DETEMIR
  3. RENVELA [Concomitant]
     Active Substance: SEVELAMER CARBONATE
  4. CARVEDILOL. [Concomitant]
     Active Substance: CARVEDILOL
  5. NEURONTIN [Concomitant]
     Active Substance: GABAPENTIN

REACTIONS (3)
  - Dialysis related complication [Unknown]
  - Bronchitis [Unknown]
  - Hyperkalaemia [Unknown]

NARRATIVE: CASE EVENT DATE: 201605
